FAERS Safety Report 7788843-8 (Version None)
Quarter: 2011Q3

REPORT INFORMATION
  Report Type: 
  Country: None (occurrence: None)
  Receive Date: 20110928
  Receipt Date: 20110916
  Transmission Date: 20111222
  Serious: Yes (Other)
  Sender: FDA-Public Use
  Company Number: 2011090062

PATIENT
  Age: 62 Year
  Sex: Female

DRUGS (1)
  1. AZELASTIN HYDROCHLORIDE [Suspect]
     Indication: HYPERSENSITIVITY
     Dosage: ONE DROP INTO EACH,OPHTHALMIC
     Route: 047
     Dates: start: 20110827, end: 20110827

REACTIONS (4)
  - DYSPNOEA [None]
  - HYPERSENSITIVITY [None]
  - CHEST DISCOMFORT [None]
  - SWOLLEN TONGUE [None]
